FAERS Safety Report 8758969 (Version 2)
Quarter: 2012Q4

REPORT INFORMATION
  Report Type: 
  Country: US (occurrence: US)
  Receive Date: 20120829
  Receipt Date: 20121128
  Transmission Date: 20130627
  Serious: No
  Sender: FDA-Public Use
  Company Number: US-009507513-1208USA001107

PATIENT
  Sex: Female
  Weight: 49.89 kg

DRUGS (4)
  1. DULERA [Suspect]
     Indication: DYSPNOEA
     Dosage: 200/5 strength, bid
     Route: 055
     Dates: start: 201201, end: 201201
  2. DULERA [Suspect]
     Dosage: 2 DF,100/5 strength, qd
     Dates: start: 201202
  3. SPIRIVA [Concomitant]
  4. PROVENTIL [Concomitant]

REACTIONS (3)
  - Stomatitis [Recovered/Resolved]
  - Muscle spasms [Recovered/Resolved]
  - Muscle spasms [Recovered/Resolved]
